FAERS Safety Report 8580915-3 (Version None)
Quarter: 2012Q3

REPORT INFORMATION
  Report Type: 
  Country: None (occurrence: None)
  Receive Date: 20120809
  Receipt Date: 20120802
  Transmission Date: 20120928
  Serious: Yes (Life-Threatening, Hospitalization, Other)
  Sender: FDA-Public Use
  Company Number: ES-GENZYME-THYM-1003361

PATIENT
  Age: 58 Year
  Sex: Female
  Weight: 61 kg

DRUGS (5)
  1. CYCLOSPORINE [Concomitant]
     Indication: PROPHYLAXIS
     Dosage: UNK
     Route: 065
  2. FLUDARA [Suspect]
     Indication: BONE MARROW CONDITIONING REGIMEN
     Dosage: 30 MG/M2, QD (DAYS 7 TO 3)
     Route: 042
     Dates: start: 20120321, end: 20120325
  3. METHOTREXATE [Concomitant]
     Indication: PROPHYLAXIS
     Dosage: UNK
     Route: 065
  4. THYMOGLOBULIN [Suspect]
     Indication: PROPHYLAXIS AGAINST TRANSPLANT REJECTION
     Dosage: 2.5 MG/KG, QD (DAY 3 TO 1)
     Route: 042
     Dates: start: 20120325, end: 20120327
  5. TREOSULFAN [Concomitant]
     Dosage: 14000 MG/M2, QD (DAYS 6 TO 4, MORE THAN 23.800 MG)
     Route: 042
     Dates: start: 20120322, end: 20120324

REACTIONS (12)
  - BLOOD LACTATE DEHYDROGENASE INCREASED [None]
  - EPSTEIN-BARR VIRUS INFECTION [None]
  - LYMPHADENOPATHY [None]
  - LYMPHOPROLIFERATIVE DISORDER [None]
  - DECREASED APPETITE [None]
  - NECK MASS [None]
  - LIVER FUNCTION TEST ABNORMAL [None]
  - ABDOMINAL PAIN UPPER [None]
  - CYTOMEGALOVIRUS INFECTION [None]
  - HEPATIC CYST [None]
  - PYREXIA [None]
  - SPLENOMEGALY [None]
